FAERS Safety Report 24377909 (Version 1)
Quarter: 2024Q3

REPORT INFORMATION
  Report Type: Spontaneous
  Country: US (occurrence: None)
  Receive Date: 20240921
  Receipt Date: 20240921
  Transmission Date: 20241017
  Serious: No
  Sender: Public
  Company Number: None

PATIENT
  Age: 49 Year
  Sex: Female
  Weight: 48.6 kg

DRUGS (1)
  1. COLLAGEN [Suspect]
     Active Substance: COLLAGEN
     Indication: Personal hygiene

REACTIONS (2)
  - Drug hypersensitivity [None]
  - Product counterfeit [None]

NARRATIVE: CASE EVENT DATE: 20240715
